FAERS Safety Report 6858707-2 (Version None)
Quarter: 2010Q3

REPORT INFORMATION
  Report Type: 
  Country: None (occurrence: None)
  Receive Date: 20100719
  Receipt Date: 20080211
  Transmission Date: 20110219
  Serious: No
  Sender: FDA-Public Use
  Company Number: US-PFIZER INC-2008015313

PATIENT
  Age: 49 Year
  Sex: Female
  Weight: 86.363 kg

DRUGS (2)
  1. CHANTIX [Suspect]
     Indication: SMOKING CESSATION THERAPY
  2. VICODIN [Concomitant]

REACTIONS (1)
  - DEPRESSION [None]
